FAERS Safety Report 7670745-9 (Version None)
Quarter: 2011Q3

REPORT INFORMATION
  Report Type: 
  Country: None (occurrence: None)
  Receive Date: 20110803
  Receipt Date: 20110719
  Transmission Date: 20111222
  Serious: Yes (Other)
  Sender: FDA-Public Use
  Company Number: 2011MA009075

PATIENT
  Age: 52 Year
  Sex: Male

DRUGS (4)
  1. PREDNISOLONE [Suspect]
     Indication: RENAL TRANSPLANT
  2. MYCOPHENOLATE MOFETIL [Suspect]
     Indication: RENAL TRANSPLANT
  3. TACROLIMUS [Suspect]
     Indication: RENAL TRANSPLANT
  4. SULFATRIM [Suspect]
     Indication: PNEUMOCYSTIS JIROVECI PNEUMONIA
     Dosage: 4320 MG; BID; IV
     Route: 042

REACTIONS (8)
  - RESTLESSNESS [None]
  - MUSCLE TWITCHING [None]
  - TEARFULNESS [None]
  - DELUSION [None]
  - PNEUMOCYSTIS JIROVECI PNEUMONIA [None]
  - ACUTE PSYCHOSIS [None]
  - MORBID THOUGHTS [None]
  - GLOMERULAR FILTRATION RATE DECREASED [None]
